FAERS Safety Report 25947180 (Version 1)
Quarter: 2025Q4

REPORT INFORMATION
  Report Type: Spontaneous
  Country: EU (occurrence: EU)
  Receive Date: 20251022
  Receipt Date: 20251022
  Transmission Date: 20260118
  Serious: Yes (Other)
  Sender: RANBAXY
  Company Number: EU-SUN PHARMACEUTICAL INDUSTRIES INC-2025R1-528567

PATIENT
  Sex: Male

DRUGS (2)
  1. CLOZAPINE [Interacting]
     Active Substance: CLOZAPINE
     Indication: Schizophrenia
     Dosage: 300 MILLIGRAM, BID
     Route: 065
  2. RIFAMPIN [Interacting]
     Active Substance: RIFAMPIN
     Indication: Schizophrenia
     Dosage: 300 MILLIGRAM, BID
     Route: 065

REACTIONS (3)
  - Drug interaction [Unknown]
  - Ventricular tachycardia [Unknown]
  - Depressed mood [Recovering/Resolving]
